FAERS Safety Report 6894075-8 (Version None)
Quarter: 2010Q3

REPORT INFORMATION
  Report Type: 
  Country: None (occurrence: None)
  Receive Date: 20100802
  Receipt Date: 20100722
  Transmission Date: 20110219
  Serious: Yes (Hospitalization, Other)
  Sender: FDA-Public Use
  Company Number: US-JNJFOC-20100502920

PATIENT
  Sex: Male

DRUGS (2)
  1. LEVOFLOXACIN [Suspect]
     Indication: RESPIRATORY TRACT INFECTION
     Route: 048
  2. CORTISONE [Suspect]
     Indication: BURSITIS
     Route: 050

REACTIONS (2)
  - TENDON RUPTURE [None]
  - TENOSYNOVITIS STENOSANS [None]
